FAERS Safety Report 6114475-3 (Version None)
Quarter: 2009Q1

REPORT INFORMATION
  Report Type: 
  Country: None (occurrence: None)
  Receive Date: 20090313
  Receipt Date: 20090304
  Transmission Date: 20090719
  Serious: Yes (Hospitalization)
  Sender: FDA-Public Use
  Company Number: DE-AMGEN-UK336612

PATIENT
  Sex: Male
  Weight: 83 kg

DRUGS (2)
  1. NPLATE [Suspect]
     Indication: IDIOPATHIC THROMBOCYTOPENIC PURPURA
     Route: 058
     Dates: start: 20090212, end: 20090212
  2. ARIXTRA [Concomitant]
     Route: 058
     Dates: end: 20090205

REACTIONS (1)
  - THROMBOSIS [None]
